FAERS Safety Report 14452844 (Version 4)
Quarter: 2018Q2

REPORT INFORMATION
  Report Type: Report from Study
  Country: DE (occurrence: DE)
  Receive Date: 20180129
  Receipt Date: 20180403
  Transmission Date: 20180711
  Serious: Yes (Death, Hospitalization)
  Sender: FDA-Public Use
  Company Number: DE-AEGERION PHARMACEUTICAL, INC-AEGR003555

PATIENT
  Age: 45 Year
  Sex: Female
  Weight: 59 kg

DRUGS (7)
  1. CARVEDILOL. [Concomitant]
     Active Substance: CARVEDILOL
     Indication: PORTAL HYPERTENSION
     Dosage: 2.5 MG, UNK
     Route: 048
  2. PANTOPRAZOL                        /01263201/ [Concomitant]
     Active Substance: PANTOPRAZOLE
     Indication: PORTAL HYPERTENSION
     Dosage: 40 MG, UNK
     Route: 048
  3. MYALEPT [Suspect]
     Active Substance: METRELEPTIN
     Indication: LIPODYSTROPHY ACQUIRED
     Dosage: 5 MG, QD
     Route: 058
     Dates: start: 20170825
  4. INSULIN LISPRO HUMALOG [Concomitant]
     Indication: DIABETES MELLITUS
     Dosage: 20 IE, UNK
     Route: 058
  5. INSULIN GLARGINE TOUJEO [Concomitant]
     Indication: DIABETES MELLITUS
     Dosage: 30 IE, UNK
     Route: 058
  6. FLUVASTATIN [Concomitant]
     Active Substance: FLUVASTATIN SODIUM
     Indication: DYSLIPIDAEMIA
     Dosage: 20 MG, UNK
     Route: 048
     Dates: start: 20171129
  7. METFORMIN [Concomitant]
     Active Substance: METFORMIN HYDROCHLORIDE
     Indication: DIABETES MELLITUS
     Dosage: 2000 MG, UNK
     Route: 048

REACTIONS (4)
  - Acute myocardial infarction [Fatal]
  - Acute kidney injury [Fatal]
  - Cardiogenic shock [Fatal]
  - Therapy cessation [Not Recovered/Not Resolved]

NARRATIVE: CASE EVENT DATE: 20171229
